FAERS Safety Report 9759590 (Version 1)
Quarter: 2013Q4

REPORT INFORMATION
  Report Type: Spontaneous
  Country: US (occurrence: US)
  Receive Date: 20131216
  Receipt Date: 20131216
  Transmission Date: 20140711
  Serious: No
  Sender: FDA-Public Use
  Company Number: US-GILEAD-2010-0028145

PATIENT
  Sex: Female
  Weight: 86.18 kg

DRUGS (5)
  1. LETAIRIS [Suspect]
     Indication: PULMONARY ARTERIAL HYPERTENSION
     Route: 048
     Dates: start: 20091112
  2. ATENOLOL [Concomitant]
  3. LASIX [Concomitant]
  4. ALTACE [Concomitant]
  5. REPLIVA [Concomitant]

REACTIONS (4)
  - Unevaluable event [Unknown]
  - Weight increased [Unknown]
  - Swelling [Unknown]
  - Palpitations [Unknown]
